FAERS Safety Report 10473481 (Version 1)
Quarter: 2014Q3

REPORT INFORMATION
  Report Type: Report from Study
  Country: BR (occurrence: BR)
  Receive Date: 20140924
  Receipt Date: 20140924
  Transmission Date: 20150326
  Serious: Yes (Death, Other)
  Sender: FDA-Public Use
  Company Number: PHHY2014BR124507

PATIENT
  Sex: Female

DRUGS (8)
  1. HUMULIN NOS [Suspect]
     Active Substance: INSULIN HUMAN
     Indication: DIABETES MELLITUS
     Dosage: UNK, BID (ONCE IN THE MORNING OR TWICE)
     Route: 065
     Dates: start: 2004
  2. EXELON [Suspect]
     Active Substance: RIVASTIGMINE TARTRATE
     Dosage: UNK UKN, UNK
  3. BENEFIBER [Suspect]
     Active Substance: STARCH, WHEAT
     Dosage: UNK UKN, UNK
  4. NOVOLIN [Suspect]
     Active Substance: INSULIN HUMAN
     Indication: DIABETES MELLITUS
     Dosage: UNK, QD (ONCE IN THE MORNING)
     Dates: start: 2004
  5. MOTILIUM [Concomitant]
     Active Substance: DOMPERIDONE
     Indication: GASTROOESOPHAGEAL REFLUX DISEASE
     Dosage: UNK UKN, UNK
     Dates: start: 2004
  6. PURAN [Concomitant]
     Active Substance: LEVOTHYROXINE SODIUM
     Dosage: UNK UKN, UNK
     Dates: start: 2004
  7. LIORAM [Concomitant]
     Indication: HEAD DISCOMFORT
     Dosage: UNK UKN, UNK
  8. LIORAM [Concomitant]
     Indication: NERVOUS SYSTEM DISORDER

REACTIONS (2)
  - Cardiac failure [Fatal]
  - Asthenia [Unknown]
